FAERS Safety Report 10174677 (Version 1)
Quarter: 2014Q2

REPORT INFORMATION
  Report Type: Spontaneous
  Country: FR (occurrence: FR)
  Receive Date: 20140515
  Receipt Date: 20140515
  Transmission Date: 20141212
  Serious: Yes (Hospitalization, Other)
  Sender: FDA-Public Use
  Company Number: FR-GLAXOSMITHKLINE-B0991427A

PATIENT
  Age: 60 Year
  Sex: Male

DRUGS (8)
  1. ZOVIRAX [Suspect]
     Indication: HERPES SIMPLEX MENINGOENCEPHALITIS
     Route: 042
     Dates: start: 20131223, end: 201312
  2. GADOLINIUM [Suspect]
     Indication: NUCLEAR MAGNETIC RESONANCE IMAGING
     Route: 042
     Dates: start: 20131223, end: 20131223
  3. CEFTRIAXONE [Suspect]
     Route: 042
     Dates: start: 201312, end: 201312
  4. ESIDREX [Suspect]
     Indication: RENAL IMPAIRMENT
     Dosage: 1TAB PER DAY
     Route: 048
     Dates: start: 20131128, end: 201401
  5. XATRAL LP [Suspect]
     Indication: BENIGN PROSTATIC HYPERPLASIA
     Dosage: 1TAB PER DAY
     Route: 048
     Dates: start: 20131128
  6. TERALITHE [Suspect]
     Indication: BIPOLAR DISORDER
     Route: 048
     Dates: end: 201312
  7. ANAFRANIL [Concomitant]
     Indication: BIPOLAR DISORDER
     Dosage: 1TAB PER DAY
     Route: 048
  8. TAHOR [Concomitant]
     Indication: DYSLIPIDAEMIA
     Dosage: 1TAB PER DAY
     Route: 048
     Dates: end: 201401

REACTIONS (4)
  - Hepatocellular injury [Recovering/Resolving]
  - Hypernatraemia [Recovered/Resolved]
  - Renal failure acute [Recovered/Resolved]
  - Dehydration [Unknown]
